FAERS Safety Report 16156491 (Version 1)
Quarter: 2019Q2

REPORT INFORMATION
  Report Type: Spontaneous
  Country: US (occurrence: US)
  Receive Date: 20190404
  Receipt Date: 20190404
  Transmission Date: 20190711
  Serious: Yes (Other)
  Sender: FDA-Public Use
  Company Number: US-PROCTER_AND_GAMBLE-GS19035001

PATIENT
  Age: 63 Year
  Sex: Male

DRUGS (7)
  1. ALCOHOL. [Suspect]
     Active Substance: ALCOHOL
     Route: 048
  2. LORAZEPAM. [Suspect]
     Active Substance: LORAZEPAM
  3. MITRAGYNINE [Suspect]
     Active Substance: HERBALS\MITRAGYNINE
  4. CARFENTANIL [Suspect]
     Active Substance: CARFENTANIL
  5. DIPHENHYDRAMINE HCL [Suspect]
     Active Substance: DIPHENHYDRAMINE HYDROCHLORIDE
  6. NORBUPRENORPHINE [Suspect]
     Active Substance: NORBUPRENORPHINE
  7. BUPRENORPHINE. [Suspect]
     Active Substance: BUPRENORPHINE

REACTIONS (6)
  - Drug screen positive [Unknown]
  - Benzodiazepine drug level increased [Unknown]
  - Road traffic accident [Unknown]
  - Loss of consciousness [Unknown]
  - Labelled drug-food interaction medication error [Unknown]
  - Miosis [Unknown]
